FAERS Safety Report 19051279 (Version 1)
Quarter: 2021Q1

REPORT INFORMATION
  Report Type: Spontaneous
  Country: US (occurrence: US)
  Receive Date: 20210324
  Receipt Date: 20210324
  Transmission Date: 20210420
  Serious: Yes (Hospitalization)
  Sender: FDA-Public Use
  Company Number: None

PATIENT
  Age: 74 Year
  Sex: Male
  Weight: 108 kg

DRUGS (10)
  1. FLOVENT HFA [Concomitant]
     Active Substance: FLUTICASONE PROPIONATE
  2. ALBUTEROL. [Concomitant]
     Active Substance: ALBUTEROL
  3. LISINOPRIL. [Concomitant]
     Active Substance: LISINOPRIL
  4. OMEPRAZOLE. [Concomitant]
     Active Substance: OMEPRAZOLE
  5. ONDANSETRON [Concomitant]
     Active Substance: ONDANSETRON
  6. MAG?OXIDE [Concomitant]
     Active Substance: MAGNESIUM OXIDE
  7. LANTUS [Concomitant]
     Active Substance: INSULIN GLARGINE
  8. ERLEADA [Suspect]
     Active Substance: APALUTAMIDE
     Indication: NEOPLASM PROSTATE
     Route: 048
     Dates: start: 20210222, end: 20210311
  9. VITAMIN D [Concomitant]
     Active Substance: VITAMIN D NOS
  10. PROCHLORPERAZINE. [Concomitant]
     Active Substance: PROCHLORPERAZINE

REACTIONS (2)
  - Anaemia [None]
  - Therapy interrupted [None]

NARRATIVE: CASE EVENT DATE: 20210311
